FAERS Safety Report 21999825 (Version 2)
Quarter: 2023Q1

REPORT INFORMATION
  Report Type: Spontaneous
  Country: US (occurrence: US)
  Receive Date: 20230216
  Receipt Date: 20230306
  Transmission Date: 20230418
  Serious: No
  Sender: FDA-Public Use
  Company Number: US-AMGEN-USASP2023023644

PATIENT
  Sex: Female

DRUGS (1)
  1. NEULASTA [Suspect]
     Active Substance: PEGFILGRASTIM
     Indication: Product used for unknown indication
     Dosage: UNK
     Route: 065
     Dates: start: 20230208

REACTIONS (4)
  - Fear of death [Unknown]
  - Application site pain [Unknown]
  - Stress [Not Recovered/Not Resolved]
  - Device physical property issue [Unknown]

NARRATIVE: CASE EVENT DATE: 20230201
